FAERS Safety Report 7286025-X (Version None)
Quarter: 2011Q1

REPORT INFORMATION
  Report Type: 
  Country: None (occurrence: None)
  Receive Date: 20110131
  Receipt Date: 20110113
  Transmission Date: 20110831
  Serious: Yes (Death)
  Sender: FDA-Public Use
  Company Number: IMP_05275_2011

PATIENT
  Age: 20 Year
  Sex: Female

DRUGS (5)
  1. OXYCODONE [Suspect]
     Indication: PRODUCT USED FOR UNKNOWN INDICATION
     Dosage: (DF PARENTERAL)
     Route: 051
     Dates: start: 20090101, end: 20090101
  2. AMITRIPTYLINE HCL [Suspect]
     Indication: PRODUCT USED FOR UNKNOWN INDICATION
     Dosage: (DF PARENTERAL)
     Route: 051
     Dates: start: 20090101, end: 20090101
  3. ACETAMINOPHEN AND HYDROCODONE BITARTRATE [Suspect]
     Indication: PRODUCT USED FOR UNKNOWN INDICATION
     Dosage: (DF PARENTERAL)
     Route: 051
     Dates: start: 20090101, end: 20090101
  4. ALPRAZOLAM [Suspect]
     Indication: PRODUCT USED FOR UNKNOWN INDICATION
     Dosage: (DF PARENTERAL)
     Route: 051
     Dates: start: 20090101, end: 20090101
  5. ETHANOL [Suspect]
     Dosage: (PARENTERAL)
     Route: 051
     Dates: start: 20090101, end: 20090101

REACTIONS (1)
  - POISONING [None]
